FAERS Safety Report 15472038 (Version 3)
Quarter: 2020Q1

REPORT INFORMATION
  Report Type: Spontaneous
  Country: CA (occurrence: CA)
  Receive Date: 20181008
  Receipt Date: 20200313
  Transmission Date: 20200409
  Serious: Yes (Other)
  Sender: FDA-Public Use
  Company Number: CA-ORION CORPORATION ORION PHARMA-TREX2018-2833

PATIENT
  Sex: Female

DRUGS (10)
  1. HYDROMORPHONE HYDROCHLORIDE. [Suspect]
     Active Substance: HYDROMORPHONE HYDROCHLORIDE
     Indication: PRODUCT USED FOR UNKNOWN INDICATION
     Route: 065
  2. COSENTYX [Suspect]
     Active Substance: SECUKINUMAB
     Route: 065
  3. PROPRANOLOL [Concomitant]
     Active Substance: PROPRANOLOL HYDROCHLORIDE
     Route: 065
  4. RIZATRIPTAN. [Concomitant]
     Active Substance: RIZATRIPTAN
     Indication: MIGRAINE
     Route: 065
  5. METHOTREXATE (TRADE NAME UNKNOWN) [Suspect]
     Active Substance: METHOTREXATE
     Indication: PRODUCT USED FOR UNKNOWN INDICATION
     Route: 065
  6. CELEBREX [Suspect]
     Active Substance: CELECOXIB
     Indication: PRODUCT USED FOR UNKNOWN INDICATION
     Route: 065
  7. COSENTYX [Suspect]
     Active Substance: SECUKINUMAB
     Indication: PRODUCT USED FOR UNKNOWN INDICATION
     Route: 042
  8. PROPRANOLOL HYDROCHLORIDE. [Concomitant]
     Active Substance: PROPRANOLOL HYDROCHLORIDE
     Indication: MIGRAINE
     Route: 065
  9. RIZATRIPTAN BENZOATE. [Concomitant]
     Active Substance: RIZATRIPTAN BENZOATE
     Route: 065
  10. DICLOFENAC [Suspect]
     Active Substance: DICLOFENAC
     Indication: PRODUCT USED FOR UNKNOWN INDICATION
     Route: 065

REACTIONS (5)
  - Drug ineffective [Unknown]
  - Nausea [Unknown]
  - Vomiting [Unknown]
  - Anaphylactic reaction [Unknown]
  - Gait inability [Unknown]
